FAERS Safety Report 13896613 (Version 1)
Quarter: 2017Q3

REPORT INFORMATION
  Report Type: Spontaneous
  Country: US (occurrence: US)
  Receive Date: 20170822
  Receipt Date: 20170822
  Transmission Date: 20171127
  Serious: Yes (Life-Threatening)
  Sender: FDA-Public Use
  Company Number: None

PATIENT
  Age: 61 Year
  Sex: Male
  Weight: 81 kg

DRUGS (5)
  1. XOFIGO [Suspect]
     Active Substance: RADIUM RA-223 DICHLORIDE
     Indication: PROSTATE CANCER METASTATIC
     Dosage: ?          OTHER FREQUENCY:EVERY 4 WEEKS;?
     Route: 040
     Dates: end: 20170505
  2. XOFIGO [Suspect]
     Active Substance: RADIUM RA-223 DICHLORIDE
     Indication: METASTASES TO BONE
     Dosage: ?          OTHER FREQUENCY:EVERY 4 WEEKS;?
     Route: 040
     Dates: end: 20170505
  3. XGEVA [Concomitant]
     Active Substance: DENOSUMAB
  4. XTANDI [Concomitant]
     Active Substance: ENZALUTAMIDE
  5. ELIGARD [Concomitant]
     Active Substance: LEUPROLIDE ACETATE

REACTIONS (1)
  - Bone marrow failure [None]

NARRATIVE: CASE EVENT DATE: 20170807
